FAERS Safety Report 5850800-6 (Version None)
Quarter: 2008Q3

REPORT INFORMATION
  Report Type: 
  Country: None (occurrence: None)
  Receive Date: 20080820
  Receipt Date: 20080812
  Transmission Date: 20090109
  Serious: Yes (Hospitalization)
  Sender: FDA-Public Use
  Company Number: BR-JNJFOC-20080803395

PATIENT
  Age: 2 Year
  Sex: Female
  Weight: 13 kg

DRUGS (1)
  1. HALDOL [Suspect]
     Indication: DRUG USE FOR UNKNOWN INDICATION
     Dosage: ACCIDENTAL EXPOSURE FOR 1 DAY(12-AUG-2008 TO 12-AUG-2008),SO THE INTERVAL CAN BE TAKEN AS 1 DAY.
     Route: 048

REACTIONS (4)
  - ACCIDENTAL EXPOSURE [None]
  - CRYING [None]
  - HYPERTONIA [None]
  - OPISTHOTONUS [None]
